FAERS Safety Report 5297706-1 (Version None)
Quarter: 2007Q2

REPORT INFORMATION
  Report Type: 
  Country: None (occurrence: None)
  Receive Date: 20070412
  Receipt Date: 20070412
  Transmission Date: 20071010
  Serious: No
  Sender: FDA-Public Use
  Company Number: None

PATIENT
  Age: 87 Year
  Sex: Male

DRUGS (2)
  1. LORAZEPAM [Suspect]
     Dosage: 1MG OTHER PO
     Route: 048
     Dates: start: 20070319, end: 20070330
  2. ACETAMINOPHEN AND HYDROCODONE BITARTRATE [Suspect]
     Dosage: 5-500MG QID PO
     Route: 048
     Dates: start: 20070320, end: 20070330

REACTIONS (2)
  - AGITATION [None]
  - DELIRIUM [None]
